FAERS Safety Report 14515949 (Version 14)
Quarter: 2020Q1

REPORT INFORMATION
  Report Type: Spontaneous
  Country: US (occurrence: US)
  Receive Date: 20180211
  Receipt Date: 20200320
  Transmission Date: 20200409
  Serious: Yes (Other)
  Sender: FDA-Public Use
  Company Number: PHHY2018US023075

PATIENT
  Age: 56 Year
  Sex: Female

DRUGS (18)
  1. JAKAFI [Suspect]
     Active Substance: RUXOLITINIB
     Dosage: 20 MG, BID
     Route: 048
     Dates: start: 20140429
  2. JAKAFI [Suspect]
     Active Substance: RUXOLITINIB
     Dosage: 20 MG, BID
     Route: 048
  3. AMOXICILLIN. [Suspect]
     Active Substance: AMOXICILLIN
     Indication: BRONCHITIS
     Dosage: UNK
     Route: 065
  4. MECLIZINE [Concomitant]
     Active Substance: MECLIZINE HYDROCHLORIDE
     Indication: PRODUCT USED FOR UNKNOWN INDICATION
     Route: 065
  5. FLEXERIL [Concomitant]
     Active Substance: CYCLOBENZAPRINE HYDROCHLORIDE
     Indication: PRODUCT USED FOR UNKNOWN INDICATION
     Route: 065
  6. JAKAFI [Suspect]
     Active Substance: RUXOLITINIB
     Indication: MYELOFIBROSIS
     Dosage: 20 MG, BID
     Route: 048
     Dates: start: 20140420
  7. CYMBALTA [Suspect]
     Active Substance: DULOXETINE HYDROCHLORIDE
     Indication: NEUROPATHY PERIPHERAL
  8. CEPACOL [Concomitant]
     Active Substance: BENZOCAINE
     Indication: PRODUCT USED FOR UNKNOWN INDICATION
     Dosage: UNK
     Route: 065
  9. JAKAFI [Suspect]
     Active Substance: RUXOLITINIB
     Indication: POLYCYTHAEMIA VERA
     Dosage: 20 MG, BID
     Route: 048
     Dates: start: 2012
  10. LORAZEPAM. [Concomitant]
     Active Substance: LORAZEPAM
     Indication: PRODUCT USED FOR UNKNOWN INDICATION
     Dosage: UNK
     Route: 065
  11. ATIVAN [Concomitant]
     Active Substance: LORAZEPAM
     Indication: PRODUCT USED FOR UNKNOWN INDICATION
     Route: 065
  12. CYMBALTA [Suspect]
     Active Substance: DULOXETINE HYDROCHLORIDE
     Indication: PELVIC PAIN
     Dosage: UNK
     Route: 065
  13. ASPIRIN. [Concomitant]
     Active Substance: ASPIRIN
     Indication: PRODUCT USED FOR UNKNOWN INDICATION
     Dosage: UNK
     Route: 065
  14. JAKAFI [Suspect]
     Active Substance: RUXOLITINIB
     Dosage: 20 MG ,BID
     Route: 065
  15. MULTIVITAMIN [Concomitant]
     Active Substance: VITAMINS
     Indication: PRODUCT USED FOR UNKNOWN INDICATION
     Route: 065
  16. JAKAFI [Suspect]
     Active Substance: RUXOLITINIB
     Dosage: 20 MG, BID
     Route: 048
  17. MOTRIN [Concomitant]
     Active Substance: IBUPROFEN
     Indication: PRODUCT USED FOR UNKNOWN INDICATION
     Dosage: UNK, PRN
     Route: 065
  18. GEMFIBROZIL. [Concomitant]
     Active Substance: GEMFIBROZIL
     Indication: PRODUCT USED FOR UNKNOWN INDICATION
     Route: 065

REACTIONS (71)
  - Skin cancer [Unknown]
  - Fall [Unknown]
  - Tachycardia [Not Recovered/Not Resolved]
  - Eosinophil count decreased [Unknown]
  - Bacterial infection [Recovered/Resolved]
  - Lymphadenopathy [Unknown]
  - Fatigue [Not Recovered/Not Resolved]
  - Chromaturia [Recovered/Resolved]
  - Glucose urine present [Not Recovered/Not Resolved]
  - Gait disturbance [Recovering/Resolving]
  - Joint swelling [Recovering/Resolving]
  - Low density lipoprotein increased [Unknown]
  - Haemoglobin decreased [Unknown]
  - Bone pain [Not Recovered/Not Resolved]
  - Arthropod bite [Unknown]
  - Arthralgia [Recovering/Resolving]
  - Splenomegaly [Recovering/Resolving]
  - Red blood cell count decreased [Unknown]
  - Renal pain [Not Recovered/Not Resolved]
  - High density lipoprotein increased [Unknown]
  - Neutrophil count decreased [Unknown]
  - Haematocrit decreased [Unknown]
  - Contusion [Unknown]
  - Product dose omission [Unknown]
  - Malaise [Not Recovered/Not Resolved]
  - White blood cell count decreased [Unknown]
  - Heart rate increased [Unknown]
  - Erythema [Unknown]
  - Muscle spasms [Recovering/Resolving]
  - Dyspnoea [Not Recovered/Not Resolved]
  - Blood glucose increased [Not Recovered/Not Resolved]
  - Pain [Not Recovered/Not Resolved]
  - Alanine aminotransferase increased [Unknown]
  - Dizziness [Unknown]
  - Headache [Not Recovered/Not Resolved]
  - Amyloidosis [Unknown]
  - Myelofibrosis [Not Recovered/Not Resolved]
  - Pain in extremity [Unknown]
  - Palpitations [Unknown]
  - Mass [Unknown]
  - Dysphonia [Unknown]
  - Nausea [Unknown]
  - Hypoxia [Unknown]
  - Pneumonia [Not Recovered/Not Resolved]
  - Dry skin [Unknown]
  - Photosensitivity reaction [Unknown]
  - Vision blurred [Not Recovered/Not Resolved]
  - Abdominal discomfort [Unknown]
  - Cough [Unknown]
  - Burning sensation [Not Recovered/Not Resolved]
  - Swelling face [Unknown]
  - Bone marrow disorder [Unknown]
  - Oropharyngeal pain [Unknown]
  - Urine ketone body present [Recovering/Resolving]
  - Blood triglycerides increased [Unknown]
  - White blood cell count abnormal [Unknown]
  - Hepatomegaly [Not Recovered/Not Resolved]
  - Heat stroke [Unknown]
  - Monocyte count decreased [Unknown]
  - Decreased activity [Unknown]
  - Sensation of foreign body [Unknown]
  - Glycosylated haemoglobin [Recovering/Resolving]
  - Aspartate aminotransferase increased [Unknown]
  - Blood cholesterol increased [Unknown]
  - Weight increased [Unknown]
  - Neuropathy peripheral [Not Recovered/Not Resolved]
  - Muscle injury [Unknown]
  - Bronchitis [Unknown]
  - Lymphocyte count decreased [Unknown]
  - Blood count abnormal [Not Recovered/Not Resolved]
  - Oedema peripheral [Not Recovered/Not Resolved]

NARRATIVE: CASE EVENT DATE: 201807
